FAERS Safety Report 25499608 (Version 1)
Quarter: 2025Q3

REPORT INFORMATION
  Report Type: Spontaneous
  Country: EU (occurrence: EU)
  Receive Date: 20250701
  Receipt Date: 20250701
  Transmission Date: 20251021
  Serious: Yes (Death, Hospitalization)
  Sender: PFIZER
  Company Number: EU-MYLANLABS-2025M1050236

PATIENT
  Age: 60 Year
  Sex: Female

DRUGS (7)
  1. IDARUBICIN HYDROCHLORIDE [Suspect]
     Active Substance: IDARUBICIN HYDROCHLORIDE
     Indication: Acute promyelocytic leukaemia
  2. ARSENIC TRIOXIDE [Suspect]
     Active Substance: ARSENIC TRIOXIDE
     Indication: Acute promyelocytic leukaemia
  3. TRETINOIN [Suspect]
     Active Substance: TRETINOIN
     Indication: Acute promyelocytic leukaemia
  4. FRESH FROZEN PLASMA [Concomitant]
     Active Substance: HUMAN PLASMA
     Indication: Disseminated intravascular coagulation
  5. DIMERCAPROL [Concomitant]
     Active Substance: DIMERCAPROL
     Indication: Chelation therapy
     Route: 042
  6. DIMERCAPROL [Concomitant]
     Active Substance: DIMERCAPROL
     Route: 042
  7. DIMERCAPROL [Concomitant]
     Active Substance: DIMERCAPROL
     Dosage: UNK, BID; FROM THE 4TH TO THE 10TH DAY (2 INJECTIONS/DAY)
     Route: 042

REACTIONS (3)
  - Cardiac arrest [Fatal]
  - Respiratory arrest [Fatal]
  - Wernicke^s encephalopathy [Unknown]
